FAERS Safety Report 19898296 (Version 1)
Quarter: 2021Q3

REPORT INFORMATION
  Report Type: Other
  Country: MY (occurrence: MY)
  Receive Date: 20210930
  Receipt Date: 20210930
  Transmission Date: 20211014
  Serious: Yes (Death)
  Sender: FDA-Public Use
  Company Number: MY-APPCO PHARMA LLC-2118973

PATIENT
  Age: 81 Year
  Sex: Female

DRUGS (7)
  1. CYCLOPHOSPHAMIDE. [Suspect]
     Active Substance: CYCLOPHOSPHAMIDE
     Route: 042
  2. HYDROCORTISONE (HYDROCORTISONE ACETATE) [Suspect]
     Active Substance: HYDROCORTISONE ACETATE
     Route: 042
  3. IV IMMUNOGLOBULIN [Suspect]
     Active Substance: HUMAN IMMUNOGLOBULIN G
     Route: 042
  4. AZATHIOPRINE. [Suspect]
     Active Substance: AZATHIOPRINE
     Route: 048
  5. METHYLPREDNISOLONE. [Suspect]
     Active Substance: METHYLPREDNISOLONE
     Route: 042
  6. HYDROXYCHLOROQUINE SULFATE. [Suspect]
     Active Substance: HYDROXYCHLOROQUINE SULFATE
     Indication: PRODUCT USED FOR UNKNOWN INDICATION
     Route: 048
  7. HYDROCORTISONE (HYDROCORTISONE ACETATE) [Suspect]
     Active Substance: HYDROCORTISONE ACETATE
     Route: 042

REACTIONS (2)
  - Drug ineffective [Fatal]
  - Condition aggravated [Fatal]
